FAERS Safety Report 4915565-0 (Version None)
Quarter: 2006Q1

REPORT INFORMATION
  Report Type: 
  Country: None (occurrence: None)
  Receive Date: 20060217
  Receipt Date: 20051117
  Transmission Date: 20060701
  Serious: Yes (Hospitalization)
  Sender: FDA-Public Use
  Company Number: US-MERCK-0511USA03155

PATIENT
  Age: 52 Year
  Sex: Male

DRUGS (5)
  1. AMARYL [Concomitant]
     Route: 065
  2. ZESTRIL [Concomitant]
     Route: 065
  3. RANITIDINE [Concomitant]
     Route: 065
  4. ASPIRIN [Concomitant]
     Route: 065
  5. VIOXX [Suspect]
     Indication: SHOULDER PAIN
     Route: 048
     Dates: start: 19991210, end: 20001201

REACTIONS (13)
  - ANXIETY [None]
  - CHEST DISCOMFORT [None]
  - CORONARY ARTERY DISEASE [None]
  - DEPRESSION [None]
  - DIABETIC NEUROPATHY [None]
  - DRUG INEFFECTIVE [None]
  - GASTROOESOPHAGEAL REFLUX DISEASE [None]
  - HIATUS HERNIA [None]
  - MELAENA [None]
  - MYOCARDIAL INFARCTION [None]
  - PERIPHERAL VASCULAR DISORDER [None]
  - TREATMENT NONCOMPLIANCE [None]
  - WEIGHT DECREASED [None]
